FAERS Safety Report 5930356-X (Version None)
Quarter: 2008Q4

REPORT INFORMATION
  Report Type: 
  Country: None (occurrence: None)
  Receive Date: 20081023
  Receipt Date: 20081015
  Transmission Date: 20090506
  Serious: Yes (Hospitalization)
  Sender: FDA-Public Use
  Company Number: 2008SP020953

PATIENT
  Age: 38 Year
  Sex: Male

DRUGS (7)
  1. TEMOZOLOMIDE [Suspect]
     Indication: GLIOBLASTOMA MULTIFORME
     Dosage: 1450 MG;QM;PO
     Route: 048
     Dates: start: 20080611, end: 20080910
  2. DOXORUBICIN HCL [Suspect]
     Indication: GLIOBLASTOMA MULTIFORME
     Dosage: 80 MG;QM;IV
     Route: 042
     Dates: start: 20080611, end: 20080910
  3. DEXAMETHASONE [Concomitant]
  4. SOMAC [Concomitant]
  5. KEPPRA [Concomitant]
  6. EPILIM [Concomitant]
  7. ONDANSETRON [Concomitant]

REACTIONS (13)
  - CHEST X-RAY ABNORMAL [None]
  - COUGH [None]
  - DYSPHASIA [None]
  - FEBRILE NEUTROPENIA [None]
  - HAEMOLYSIS [None]
  - HEADACHE [None]
  - LUNG CONSOLIDATION [None]
  - NEOPLASM MALIGNANT [None]
  - NEUTROPHIL TOXIC GRANULATION PRESENT [None]
  - PANCYTOPENIA [None]
  - SEPSIS [None]
  - SHIFT TO THE LEFT [None]
  - TACHYCARDIA [None]
